FAERS Safety Report 23164633 (Version 3)
Quarter: 2024Q3

REPORT INFORMATION
  Report Type: Report from Study
  Country: IT (occurrence: IT)
  Receive Date: 20231109
  Receipt Date: 20240809
  Transmission Date: 20241017
  Serious: Yes (Life-Threatening, Other)
  Sender: ROCHE
  Company Number: IT-ROCHE-3373042

PATIENT
  Age: 63 Year
  Sex: Male
  Weight: 60.0 kg

DRUGS (21)
  1. GLOFITAMAB [Suspect]
     Active Substance: GLOFITAMAB
     Indication: Diffuse large B-cell lymphoma stage IV
     Route: 042
     Dates: start: 20230619, end: 20231011
  2. GLOFITAMAB [Suspect]
     Active Substance: GLOFITAMAB
     Route: 042
     Dates: start: 20230612
  3. GLOFITAMAB [Suspect]
     Active Substance: GLOFITAMAB
     Route: 042
  4. OBINUTUZUMAB [Suspect]
     Active Substance: OBINUTUZUMAB
     Indication: Diffuse large B-cell lymphoma stage IV
     Route: 042
     Dates: start: 20230612
  5. BACTRIM [Concomitant]
     Active Substance: SULFAMETHOXAZOLE\TRIMETHOPRIM
  6. ALLOPURINOL [Concomitant]
     Active Substance: ALLOPURINOL
  7. VALACYCLOVIR HYDROCHLORIDE [Concomitant]
     Active Substance: VALACYCLOVIR HYDROCHLORIDE
  8. ENOXAPARIN SODIUM [Concomitant]
     Active Substance: ENOXAPARIN SODIUM
     Route: 058
  9. PANTOPRAZOLE SODIUM [Concomitant]
     Active Substance: PANTOPRAZOLE SODIUM
  10. BISOPROLOL [Concomitant]
     Active Substance: BISOPROLOL\BISOPROLOL FUMARATE
  11. ALLOPURINOL [Concomitant]
     Active Substance: ALLOPURINOL
  12. LAMIVUDINE [Concomitant]
     Active Substance: LAMIVUDINE
  13. PANTOPRAZOLE [Concomitant]
     Active Substance: PANTOPRAZOLE
  14. VALACYCLOVIR [Concomitant]
     Active Substance: VALACYCLOVIR HYDROCHLORIDE
  15. SULFAMETHOXAZOLE\TRIMETHOPRIM [Concomitant]
     Active Substance: SULFAMETHOXAZOLE\TRIMETHOPRIM
  16. DEXAMETHASONE [Concomitant]
     Active Substance: DEXAMETHASONE
  17. SILODOSIN [Concomitant]
     Active Substance: SILODOSIN
  18. OXYCODONE [Concomitant]
     Active Substance: OXYCODONE
  19. NALOXONE [Concomitant]
     Active Substance: NALOXONE
  20. LAMIVUDINE [Concomitant]
     Active Substance: LAMIVUDINE
  21. SOFOSBUVIR\VELPATASVIR [Concomitant]
     Active Substance: SOFOSBUVIR\VELPATASVIR

REACTIONS (2)
  - Cytokine release syndrome [Recovered/Resolved]
  - Encephalitis viral [Not Recovered/Not Resolved]

NARRATIVE: CASE EVENT DATE: 20230620
